FAERS Safety Report 24778884 (Version 1)
Quarter: 2024Q4

REPORT INFORMATION
  Report Type: Spontaneous
  Country: CN (occurrence: CN)
  Receive Date: 20241226
  Receipt Date: 20241226
  Transmission Date: 20250115
  Serious: Yes (Other)
  Sender: PURDUE
  Company Number: CN-NAPPMUNDI-GBR-2024-0122246

PATIENT
  Age: 79 Year
  Sex: Male
  Weight: 37 kg

DRUGS (1)
  1. OXYCODONE HYDROCHLORIDE [Suspect]
     Active Substance: OXYCODONE HYDROCHLORIDE
     Indication: Analgesic therapy
     Dosage: 20 MILLIGRAM, Q12H
     Route: 048
     Dates: start: 20241214, end: 20241214

REACTIONS (4)
  - Respiratory depression [Recovering/Resolving]
  - Blood pressure decreased [Recovering/Resolving]
  - Depressed level of consciousness [Recovered/Resolved]
  - Miosis [Unknown]

NARRATIVE: CASE EVENT DATE: 20241214
